FAERS Safety Report 7980392 (Version 3)
Quarter: 2014Q1

REPORT INFORMATION
  Report Type: Spontaneous
  Country: FR (occurrence: FR)
  Receive Date: 20110608
  Receipt Date: 20140127
  Transmission Date: 20141002
  Serious: Yes (Other)
  Sender: FDA-Public Use
  Company Number: PHHY2011FR47145

PATIENT
  Sex: Female

DRUGS (4)
  1. TAMOXIFEN SANDOZ [Suspect]
     Dates: start: 20110107, end: 20110318
  2. ZOMETA [Suspect]
     Indication: BONE DISORDER
     Route: 041
     Dates: start: 20100816, end: 20110415
  3. AVASTIN [Suspect]
     Indication: BREAST CANCER
     Dosage: 25 MG/ML, UNK
     Route: 041
     Dates: start: 201007, end: 20110415
  4. TAXOL [Suspect]
     Indication: BREAST CANCER
     Route: 041
     Dates: start: 201007, end: 20101222

REACTIONS (1)
  - Osteonecrosis of jaw [Not Recovered/Not Resolved]
